FAERS Safety Report 10706780 (Version 1)
Quarter: 2015Q1

REPORT INFORMATION
  Report Type: Spontaneous
  Country: US (occurrence: None)
  Receive Date: 20150112
  Receipt Date: 20150112
  Transmission Date: 20150721
  Serious: Yes (Death)
  Sender: FDA-Public Use
  Company Number: None

PATIENT
  Sex: Male
  Weight: 99.1 kg

DRUGS (13)
  1. SOFOSBUVIR [Suspect]
     Active Substance: SOFOSBUVIR
     Route: 048
     Dates: start: 20140422
  2. OMEPRAZOLE. [Concomitant]
     Active Substance: OMEPRAZOLE
  3. XIFAXAN [Concomitant]
     Active Substance: RIFAXIMIN
  4. VITAMIN B12 [Concomitant]
     Active Substance: CYANOCOBALAMIN
  5. MILTIPLE VITAMIN PO [Concomitant]
  6. GLIMEPIRIDE. [Concomitant]
     Active Substance: GLIMEPIRIDE
  7. NADOLOL. [Concomitant]
     Active Substance: NADOLOL
  8. MILK THISTLE [Concomitant]
     Active Substance: MILK THISTLE
  9. RIBAVIRIN. [Suspect]
     Active Substance: RIBAVIRIN
     Route: 048
     Dates: start: 20140202, end: 20140422
  10. METFORMIN [Concomitant]
     Active Substance: METFORMIN HYDROCHLORIDE
  11. KEPPRA [Concomitant]
     Active Substance: LEVETIRACETAM
  12. LACTULOSE. [Concomitant]
     Active Substance: LACTULOSE
  13. FISH OIL [Concomitant]
     Active Substance: FISH OIL

REACTIONS (4)
  - Hepatic failure [None]
  - General physical health deterioration [None]
  - Jaundice [None]
  - Acute kidney injury [None]

NARRATIVE: CASE EVENT DATE: 20140515
